FAERS Safety Report 8937100 (Version 1)
Quarter: 2012Q4

REPORT INFORMATION
  Report Type: Spontaneous
  Country: US (occurrence: None)
  Receive Date: 20121128
  Receipt Date: 20121128
  Transmission Date: 20130627
  Serious: No
  Sender: FDA-Public Use
  Company Number: None

PATIENT

DRUGS (1)
  1. NALTREXONE [Suspect]

REACTIONS (4)
  - Feeling abnormal [None]
  - Liver disorder [None]
  - Renal failure [None]
  - Liver function test abnormal [None]
